FAERS Safety Report 7067647-8 (Version None)
Quarter: 2010Q4

REPORT INFORMATION
  Report Type: 
  Country: None (occurrence: None)
  Receive Date: 20101028
  Receipt Date: 20101018
  Transmission Date: 20110411
  Serious: Yes (Hospitalization)
  Sender: FDA-Public Use
  Company Number: JP-SANOFI-AVENTIS-2010SA003258

PATIENT
  Age: 63 Year
  Sex: Female
  Weight: 47.5 kg

DRUGS (5)
  1. CLOPIDOGREL BISULFATE [Suspect]
     Route: 048
     Dates: start: 20090908
  2. ASPIRIN [Concomitant]
     Route: 048
     Dates: start: 20090908
  3. HEPARIN [Concomitant]
     Dosage: DOSE:10000 UNIT(S)
     Route: 042
     Dates: start: 20090923, end: 20090923
  4. GLYBURIDE [Concomitant]
     Indication: DIABETES MELLITUS
     Route: 048
     Dates: start: 20040914, end: 20100422
  5. BASEN [Concomitant]
     Indication: DIABETES MELLITUS
     Route: 048
     Dates: start: 20030515, end: 20100422

REACTIONS (5)
  - ACUTE MYOCARDIAL INFARCTION [None]
  - ANGINA PECTORIS [None]
  - DIABETES MELLITUS [None]
  - GASTRITIS ATROPHIC [None]
  - GLYCOSYLATED HAEMOGLOBIN INCREASED [None]
